FAERS Safety Report 6815511-9 (Version None)
Quarter: 2010Q3

REPORT INFORMATION
  Report Type: 
  Country: None (occurrence: None)
  Receive Date: 20100702
  Receipt Date: 20100629
  Transmission Date: 20110219
  Serious: Yes (Other)
  Sender: FDA-Public Use
  Company Number: CHPA2010US10860

PATIENT
  Age: 67 Year
  Sex: Female

DRUGS (1)
  1. EXCEDRIN MIGRAINE (NCH) [Suspect]
     Indication: MIGRAINE
     Dosage: 8-10 DF, QW
     Route: 048
     Dates: end: 20100501

REACTIONS (2)
  - HAEMOGLOBIN DECREASED [None]
  - HAEMORRHAGE [None]
